FAERS Safety Report 6828237-2 (Version None)
Quarter: 2010Q3

REPORT INFORMATION
  Report Type: 
  Country: None (occurrence: None)
  Receive Date: 20100709
  Receipt Date: 20070202
  Transmission Date: 20110219
  Serious: No
  Sender: FDA-Public Use
  Company Number: US-PFIZER INC-2007009630

PATIENT
  Sex: Male
  Weight: 99.79 kg

DRUGS (10)
  1. CHANTIX [Suspect]
     Indication: SMOKING CESSATION THERAPY
     Route: 048
     Dates: start: 20061201, end: 20070101
  2. WARFARIN [Concomitant]
  3. ZYPREXA [Concomitant]
  4. SEROQUEL [Concomitant]
  5. CLONAZEPAM [Concomitant]
  6. LISINOPRIL [Concomitant]
  7. DOCUSATE SODIUM [Concomitant]
  8. FISH OIL [Concomitant]
  9. MULTI-VITAMINS [Concomitant]
  10. CALCIUM CARBONATE [Concomitant]

REACTIONS (1)
  - WITHDRAWAL SYNDROME [None]
